FAERS Safety Report 8061056-0 (Version None)
Quarter: 2012Q1

REPORT INFORMATION
  Report Type: 
  Country: None (occurrence: None)
  Receive Date: 20120120
  Receipt Date: 20110512
  Transmission Date: 20120608
  Serious: No
  Sender: FDA-Public Use
  Company Number: US-ALLERGAN-1106547US

PATIENT
  Age: 57 Year
  Sex: Female

DRUGS (3)
  1. RESTASIS [Suspect]
     Indication: CONJUNCTIVAL OEDEMA
  2. RESTASIS [Suspect]
     Indication: DRY EYE
     Dosage: 2 GTT, BID
     Route: 047
     Dates: start: 20110506, end: 20110510
  3. ZADITOR [Concomitant]
     Indication: ANTIALLERGIC THERAPY
     Dosage: 1 GTT, Q12H
     Route: 047
     Dates: start: 20110301

REACTIONS (4)
  - FATIGUE [None]
  - PAIN [None]
  - OROPHARYNGEAL PAIN [None]
  - LYMPHADENOPATHY [None]
